APPROVED DRUG PRODUCT: DIMENHYDRINATE
Active Ingredient: DIMENHYDRINATE
Strength: 50MG/ML
Dosage Form/Route: INJECTABLE;INJECTION
Application: A084316 | Product #001
Applicant: WYETH AYERST LABORATORIES
Approved: Approved Prior to Jan 1, 1982 | RLD: No | RS: No | Type: DISCN